FAERS Safety Report 8859235 (Version 1)
Quarter: 2012Q4

REPORT INFORMATION
  Report Type: Spontaneous
  Country: CA (occurrence: None)
  Receive Date: 20121023
  Receipt Date: 20121023
  Transmission Date: 20130627
  Serious: Yes (Other)
  Sender: FDA-Public Use
  Company Number: FK201203137

PATIENT
  Sex: Male

DRUGS (4)
  1. METHOTREXATE [Suspect]
     Indication: POLYARTHRITIS
  2. ETANERCEPT [Suspect]
  3. HYDROXYCHLOROQUINE [Suspect]
  4. MYCOPHENOLATE MOFETIL [Suspect]

REACTIONS (1)
  - Basal cell carcinoma [None]
